FAERS Safety Report 6149553-6 (Version None)
Quarter: 2009Q2

REPORT INFORMATION
  Report Type: 
  Country: None (occurrence: None)
  Receive Date: 20090409
  Receipt Date: 20090330
  Transmission Date: 20091009
  Serious: Yes (Other)
  Sender: FDA-Public Use
  Company Number: PHHY2009BR12708

PATIENT
  Sex: Female

DRUGS (3)
  1. EXFORGE [Suspect]
     Indication: HYPERTENSION
     Dosage: 1 TABLET (160 MG VALSARTAN/10 MG AMLODIPINE) PER DAY
     Route: 048
     Dates: start: 20090101
  2. DIOVAN HCT [Suspect]
     Indication: HYPERTENSION
  3. CLORANA [Concomitant]
     Indication: HYPERTENSION
     Dosage: 25 MG, UNK
     Route: 048

REACTIONS (2)
  - SKIN DISCOLOURATION [None]
  - SWELLING [None]
